FAERS Safety Report 5870967-3 (Version None)
Quarter: 2008Q3

REPORT INFORMATION
  Report Type: 
  Country: None (occurrence: None)
  Receive Date: 20080904
  Receipt Date: 20080829
  Transmission Date: 20090109
  Serious: Yes (Hospitalization)
  Sender: FDA-Public Use
  Company Number: US-ABBOTT-08P-163-0473056-00

PATIENT
  Sex: Female
  Weight: 51.302 kg

DRUGS (9)
  1. NIASPAN [Suspect]
     Indication: BLOOD CHOLESTEROL INCREASED
     Route: 048
     Dates: start: 20070101, end: 20080201
  2. NIASPAN [Suspect]
     Indication: BLOOD TRIGLYCERIDES
     Route: 048
     Dates: start: 20080701, end: 20080801
  3. NIASPAN [Suspect]
     Route: 048
     Dates: start: 20080801
  4. ESOMEPRAZOLE MAGNESIUM [Concomitant]
     Indication: GASTROOESOPHAGEAL REFLUX DISEASE
     Route: 048
     Dates: start: 19930101
  5. ATENOLOL [Concomitant]
     Indication: HYPERTENSION
     Dosage: 50 MG OR 25 MG DAILY
     Route: 048
     Dates: start: 19880101
  6. PROCHLORPERAZINE EDISYLATE [Concomitant]
     Indication: VOMITING
     Route: 048
     Dates: start: 20080201
  7. PROCHLORPERAZINE EDISYLATE [Concomitant]
     Indication: NAUSEA
  8. GAVISCON [Concomitant]
     Indication: GASTROOESOPHAGEAL REFLUX DISEASE
     Route: 048
  9. MAALOX [Concomitant]
     Indication: GASTROOESOPHAGEAL REFLUX DISEASE
     Route: 048

REACTIONS (9)
  - ANOREXIA [None]
  - BURNING SENSATION [None]
  - DEHYDRATION [None]
  - ELECTROLYTE IMBALANCE [None]
  - FLUSHING [None]
  - LOSS OF CONSCIOUSNESS [None]
  - NAUSEA [None]
  - VOMITING [None]
  - WEIGHT DECREASED [None]
